FAERS Safety Report 5394583-5 (Version None)
Quarter: 2007Q3

REPORT INFORMATION
  Report Type: 
  Country: None (occurrence: None)
  Receive Date: 20070723
  Receipt Date: 20070711
  Transmission Date: 20080115
  Serious: Yes (Hospitalization)
  Sender: FDA-Public Use
  Company Number: US-SHR-US-2007-025809

PATIENT
  Age: 61 Year
  Sex: Male

DRUGS (3)
  1. BETASERON [Suspect]
     Dosage: 8 MIU, EVERY 2D
     Route: 058
     Dates: start: 20030101, end: 20060810
  2. BETASERON [Suspect]
     Dosage: 8 MIU, EVERY 2D
     Route: 058
     Dates: start: 20061211, end: 20070212
  3. COUMADIN [Concomitant]

REACTIONS (2)
  - CHOLELITHIASIS [None]
  - MULTIPLE SCLEROSIS [None]
